FAERS Safety Report 9286656 (Version 1)
Quarter: 2013Q2

REPORT INFORMATION
  Report Type: Spontaneous
  Country: FR (occurrence: None)
  Receive Date: 20130508
  Receipt Date: 20130508
  Transmission Date: 20140414
  Serious: Yes (Other)
  Sender: FDA-Public Use
  Company Number: VAL_02504_2013

PATIENT
  Sex: Male

DRUGS (2)
  1. METOPROLOL [Suspect]
     Indication: SUPRAVENTRICULAR TACHYARRHYTHMIA
  2. METOPROLOL [Suspect]
     Indication: OFF LABEL USE

REACTIONS (6)
  - Maternal drugs affecting foetus [None]
  - Premature baby [None]
  - Low birth weight baby [None]
  - Atrial fibrillation [None]
  - Tachycardia [None]
  - Supraventricular tachyarrhythmia [None]
